FAERS Safety Report 9741913 (Version 2)
Quarter: 2014Q1

REPORT INFORMATION
  Report Type: Spontaneous
  Country: MC (occurrence: FR)
  Receive Date: 20131210
  Receipt Date: 20140103
  Transmission Date: 20141002
  Serious: Yes (Hospitalization, Other)
  Sender: FDA-Public Use
  Company Number: MC-JNJFOC-20131202062

PATIENT
  Sex: Female
  Weight: 61 kg

DRUGS (1)
  1. XARELTO [Suspect]
     Indication: PRODUCT USED FOR UNKNOWN INDICATION
     Route: 048
     Dates: start: 201308, end: 201310

REACTIONS (2)
  - Vomiting [Recovered/Resolved]
  - Weight decreased [Recovered/Resolved]
